FAERS Safety Report 14623887 (Version 1)
Quarter: 2018Q1

REPORT INFORMATION
  Report Type: Spontaneous
  Country: US (occurrence: US)
  Receive Date: 20180309
  Receipt Date: 20180309
  Transmission Date: 20180509
  Serious: Yes (Hospitalization)
  Sender: FDA-Public Use
  Company Number: None

PATIENT
  Age: 70 Year
  Sex: Male
  Weight: 95 kg

DRUGS (1)
  1. WARFARIN [Suspect]
     Active Substance: WARFARIN
     Indication: ATRIAL FIBRILLATION
     Dates: start: 20110408, end: 20180202

REACTIONS (7)
  - Hypokalaemia [None]
  - Haematocrit decreased [None]
  - Fall [None]
  - Electrolyte imbalance [None]
  - Haemoglobin decreased [None]
  - International normalised ratio abnormal [None]
  - Asthenia [None]

NARRATIVE: CASE EVENT DATE: 20180202
